FAERS Safety Report 10017285 (Version 2)
Quarter: 2014Q1

REPORT INFORMATION
  Report Type: Spontaneous
  Country: US (occurrence: US)
  Receive Date: 20140318
  Receipt Date: 20140326
  Transmission Date: 20141002
  Serious: Yes (Hospitalization)
  Sender: FDA-Public Use
  Company Number: US-JNJFOC-20140306467

PATIENT
  Age: 83 Year
  Sex: Male
  Weight: 85 kg

DRUGS (11)
  1. XARELTO [Suspect]
     Indication: THROMBOSIS PROPHYLAXIS
     Route: 048
     Dates: start: 20131017, end: 20131022
  2. XARELTO [Suspect]
     Indication: KNEE ARTHROPLASTY
     Route: 048
     Dates: start: 20131017, end: 20131022
  3. XARELTO [Suspect]
     Indication: THROMBOSIS PROPHYLAXIS
     Route: 048
     Dates: start: 20131017, end: 20131022
  4. ALLOPURINOL [Concomitant]
     Route: 048
  5. AGGRENOX [Concomitant]
     Dosage: 25-200 MG
     Route: 048
  6. FELODIPINE [Concomitant]
     Route: 048
  7. SENNA DOCUSATE [Concomitant]
     Dosage: 8.6-50 MG 2 TABLETS.
     Route: 048
  8. TAMSULOSIN [Concomitant]
     Route: 048
  9. TRAMADOL [Concomitant]
     Dosage: AS REQUIRED
     Route: 048
  10. NORCO [Concomitant]
     Route: 065
  11. APAP [Concomitant]
     Route: 065

REACTIONS (1)
  - Pulmonary embolism [Unknown]
